FAERS Safety Report 4807443-2 (Version None)
Quarter: 2005Q4

REPORT INFORMATION
  Report Type: 
  Country: None (occurrence: None)
  Receive Date: 20051020
  Receipt Date: 20051020
  Transmission Date: 20060501
  Serious: Yes (Disabling)
  Sender: FDA-Public Use
  Company Number: None

PATIENT
  Sex: Male
  Weight: 88.4514 kg

DRUGS (2)
  1. CIPRO [Suspect]
     Indication: CYSTITIS
     Dosage: 1000 MG DAILY
     Dates: start: 20031022
  2. CIPRO [Suspect]
     Indication: PROSTATE INFECTION
     Dosage: 1000 MG DAILY
     Dates: start: 20031022

REACTIONS (9)
  - ARTHRITIS [None]
  - BACK PAIN [None]
  - ERYTHEMA [None]
  - GOUT [None]
  - INFLAMMATION [None]
  - NECK PAIN [None]
  - OEDEMA PERIPHERAL [None]
  - PARAESTHESIA [None]
  - SPINAL CORD DISORDER [None]
